FAERS Safety Report 16177505 (Version 1)
Quarter: 2019Q2

REPORT INFORMATION
  Report Type: Spontaneous
  Country: AT (occurrence: AT)
  Receive Date: 20190410
  Receipt Date: 20190410
  Transmission Date: 20190711
  Serious: Yes (Hospitalization, Other)
  Sender: FDA-Public Use
  Company Number: AT-ROCHE-2300190

PATIENT
  Age: 43 Year
  Sex: Male
  Weight: 78 kg

DRUGS (12)
  1. VINCRISTINE [Concomitant]
     Active Substance: VINCRISTINE
     Dosage: 6 CYCLES
     Route: 065
     Dates: end: 201808
  2. PREDNISONE. [Concomitant]
     Active Substance: PREDNISONE
     Dosage: 6 CYCLES
     Route: 065
     Dates: end: 201808
  3. CARBOPLATIN. [Concomitant]
     Active Substance: CARBOPLATIN
  4. IFOSFAMIDE. [Concomitant]
     Active Substance: IFOSFAMIDE
  5. RITUXIMAB. [Suspect]
     Active Substance: RITUXIMAB
     Indication: DIFFUSE LARGE B-CELL LYMPHOMA REFRACTORY
     Route: 042
     Dates: end: 201411
  6. SELINEXOR [Concomitant]
     Active Substance: SELINEXOR
     Route: 065
     Dates: start: 201802
  7. RITUXIMAB. [Suspect]
     Active Substance: RITUXIMAB
     Route: 042
     Dates: start: 20190329
  8. CORTISON [Suspect]
     Active Substance: CORTISONE ACETATE
     Indication: DIFFUSE LARGE B-CELL LYMPHOMA REFRACTORY
     Route: 065
     Dates: start: 20190329
  9. CYCLOPHOSPHAMIDE. [Concomitant]
     Active Substance: CYCLOPHOSPHAMIDE
     Dosage: 6 CYCLES
     Route: 065
     Dates: end: 201808
  10. DOXORUBICIN [Concomitant]
     Active Substance: DOXORUBICIN
     Dosage: 6 CYCLES
     Route: 065
     Dates: end: 201808
  11. RITUXIMAB. [Suspect]
     Active Substance: RITUXIMAB
     Dosage: MONOTHERAPY 2 CYCLES
     Route: 042
     Dates: end: 201808
  12. ETOPOSIDE. [Concomitant]
     Active Substance: ETOPOSIDE

REACTIONS (4)
  - Pancytopenia [Unknown]
  - Urinary retention [Unknown]
  - Drug ineffective [Unknown]
  - Hydronephrosis [Unknown]

NARRATIVE: CASE EVENT DATE: 20190403
